FAERS Safety Report 8844121 (Version 3)
Quarter: 2012Q4

REPORT INFORMATION
  Report Type: Report from Study
  Country: US (occurrence: US)
  Receive Date: 20121016
  Receipt Date: 20121024
  Transmission Date: 20130627
  Serious: Yes (Hospitalization)
  Sender: FDA-Public Use
  Company Number: US-JNJFOC-20110412285

PATIENT
  Age: 18 Year
  Sex: Female
  Weight: 64.2 kg

DRUGS (10)
  1. INFLIXIMAB, RECOMBINANT [Suspect]
     Indication: CROHN^S DISEASE
     Route: 042
     Dates: start: 20060511
  2. 5-ASA [Concomitant]
     Route: 048
  3. VITAMIN D [Concomitant]
  4. CULTURELLE [Concomitant]
  5. FISH OIL [Concomitant]
  6. ALBUTEROL [Concomitant]
  7. FOLIC ACID [Concomitant]
  8. CITRACAL D [Concomitant]
  9. MULTIVITAMINS [Concomitant]
  10. PROBIOTICS [Concomitant]

REACTIONS (1)
  - Crohn^s disease [Recovered/Resolved]
